FAERS Safety Report 8968269 (Version 1)
Quarter: 2012Q4

REPORT INFORMATION
  Report Type: 
  Country: US (occurrence: US)
  Receive Date: 20121217
  Receipt Date: 20121217
  Transmission Date: 20130627
  Serious: Yes (Other)
  Sender: FDA-Public Use
  Company Number: PHEH2012US024235

PATIENT
  Sex: Female

DRUGS (1)
  1. GLEEVEC [Suspect]
     Indication: GASTROINTESTINAL CARCINOMA
     Dosage: 400 mg, daily
     Route: 048
     Dates: start: 20110505

REACTIONS (4)
  - Ocular hyperaemia [Unknown]
  - Vision blurred [Unknown]
  - Eyelid oedema [Unknown]
  - Eye swelling [Unknown]
